FAERS Safety Report 6532266-6 (Version None)
Quarter: 2010Q1

REPORT INFORMATION
  Report Type: 
  Country: None (occurrence: None)
  Receive Date: 20100108
  Receipt Date: 20091230
  Transmission Date: 20100710
  Serious: Yes (Other)
  Sender: FDA-Public Use
  Company Number: IL-GENENTECH-296558

PATIENT
  Age: 26 Year
  Sex: Female

DRUGS (4)
  1. ACTIVASE [Suspect]
     Indication: THROMBOSIS
     Dosage: 0.05 UNK, UNK
  2. ACTIVASE [Suspect]
     Indication: SUPERIOR VENA CAVAL OCCLUSION
  3. HEPARIN [Suspect]
     Indication: THROMBOSIS
     Dosage: 35000 U, QD
  4. HEPARIN [Suspect]
     Indication: SUPERIOR VENA CAVAL OCCLUSION

REACTIONS (3)
  - ABORTION MISSED [None]
  - HAEMOGLOBIN DECREASED [None]
  - SUBCUTANEOUS HAEMATOMA [None]
